FAERS Safety Report 23331779 (Version 4)
Quarter: 2025Q2

REPORT INFORMATION
  Report Type: Report from Study
  Country: JP (occurrence: JP)
  Receive Date: 20231222
  Receipt Date: 20250603
  Transmission Date: 20250716
  Serious: Yes (Death, Life-Threatening, Hospitalization, Other)
  Sender: GENMAB
  Company Number: JP-GENMAB-2023-02431

PATIENT
  Age: 50 Year
  Sex: Female
  Weight: 53 kg

DRUGS (4)
  1. EPKINLY [Suspect]
     Active Substance: EPCORITAMAB-BYSP
     Indication: Diffuse large B-cell lymphoma refractory
     Route: 058
     Dates: start: 20231205, end: 20231205
  2. EPKINLY [Suspect]
     Active Substance: EPCORITAMAB-BYSP
     Route: 058
     Dates: start: 20231212, end: 20231212
  3. EPKINLY [Suspect]
     Active Substance: EPCORITAMAB-BYSP
     Route: 058
     Dates: start: 20231219, end: 20231219
  4. CORTICOTROPIN [Concomitant]
     Active Substance: CORTICOTROPIN
     Indication: Prophylaxis
     Dates: start: 202312, end: 202312

REACTIONS (4)
  - Wheezing [Fatal]
  - Dyspnoea [Fatal]
  - Hypoaesthesia [Fatal]
  - Cytokine release syndrome [Recovered/Resolved]

NARRATIVE: CASE EVENT DATE: 20231201
